FAERS Safety Report 7368831-6 (Version None)
Quarter: 2011Q1

REPORT INFORMATION
  Report Type: 
  Country: None (occurrence: None)
  Receive Date: 20110323
  Receipt Date: 20100809
  Transmission Date: 20110831
  Serious: Yes (Hospitalization, Other)
  Sender: FDA-Public Use
  Company Number: US-BAYER-201024847NA

PATIENT
  Sex: Female
  Weight: 59.864 kg

DRUGS (14)
  1. SYNTHROID [Concomitant]
     Indication: HYPOTHYROIDISM
  2. VOLTAREN [Concomitant]
  3. B6-VITAMIIN NS [Concomitant]
     Indication: UNEVALUABLE EVENT
     Dosage: UNK
     Dates: start: 20080101
  4. VALTREX [Concomitant]
  5. MULTI-VITAMIN [Concomitant]
     Indication: UNEVALUABLE EVENT
     Dosage: UNK
     Dates: start: 20080101
  6. YAZ [Suspect]
     Indication: CONTRACEPTION
     Route: 048
     Dates: start: 20070801, end: 20080716
  7. VITAMIN D [Concomitant]
     Indication: UNEVALUABLE EVENT
     Dosage: UNK
     Dates: start: 20080101
  8. EFFEXOR [Concomitant]
     Indication: UNEVALUABLE EVENT
     Dosage: UNK
     Dates: start: 20080101
  9. YASMIN [Suspect]
     Indication: ENDOMETRIOSIS
  10. ULTRACET [Concomitant]
  11. YASMIN [Suspect]
     Indication: CONTRACEPTION
     Route: 048
     Dates: start: 20060101, end: 20060601
  12. YAZ [Suspect]
     Indication: ENDOMETRIOSIS
  13. DICLOFENAC SODIUM [Concomitant]
     Dosage: 50 MG, UNK
  14. MOTRIN [Concomitant]
     Indication: HEADACHE
     Dosage: UNK
     Dates: start: 20080701

REACTIONS (4)
  - PULMONARY EMBOLISM [None]
  - CHEST PAIN [None]
  - MENTAL DISORDER [None]
  - DYSPNOEA [None]
